FAERS Safety Report 19047451 (Version 2)
Quarter: 2021Q3

REPORT INFORMATION
  Report Type: Report from Study
  Country: None (occurrence: GB)
  Receive Date: 20210323
  Receipt Date: 20210928
  Transmission Date: 20211014
  Serious: Yes (Other)
  Sender: FDA-Public Use
  Company Number: GB-ABBVIE-21K-167-3823053-00

PATIENT
  Age: 51 Year
  Sex: Female

DRUGS (3)
  1. HUMIRA [Suspect]
     Active Substance: ADALIMUMAB
     Indication: PSORIATIC ARTHROPATHY
     Route: 058
  2. HUMIRA [Suspect]
     Active Substance: ADALIMUMAB
     Route: 058
  3. COVID?19 VACCINE NOS. [Suspect]
     Active Substance: COVID-19 VACCINE NOS
     Indication: COVID-19 IMMUNISATION
     Route: 030

REACTIONS (15)
  - Joint swelling [Unknown]
  - Walking aid user [Unknown]
  - Psoriasis [Not Recovered/Not Resolved]
  - Loss of personal independence in daily activities [Not Recovered/Not Resolved]
  - Arthropod bite [Unknown]
  - Post procedural complication [Unknown]
  - Vaccination complication [Not Recovered/Not Resolved]
  - Poor quality sleep [Unknown]
  - Pain [Unknown]
  - Therapeutic product effect incomplete [Unknown]
  - Arthroscopy [Unknown]
  - Arthralgia [Unknown]
  - Autoimmune disorder [Unknown]
  - Fatigue [Unknown]
  - Wheelchair user [Unknown]

NARRATIVE: CASE EVENT DATE: 202012
